FAERS Safety Report 13494861 (Version 6)
Quarter: 2017Q3

REPORT INFORMATION
  Report Type: Spontaneous
  Country: US (occurrence: US)
  Receive Date: 20170428
  Receipt Date: 20170807
  Transmission Date: 20171127
  Serious: Yes (Hospitalization, Other)
  Sender: FDA-Public Use
  Company Number: US-PFIZER INC-2017183758

PATIENT
  Age: 77 Year
  Sex: Male

DRUGS (3)
  1. SUTENT [Suspect]
     Active Substance: SUNITINIB MALATE
     Dosage: 25 MG, DAILY
     Route: 048
     Dates: start: 2017
  2. SUTENT [Suspect]
     Active Substance: SUNITINIB MALATE
     Indication: METASTATIC RENAL CELL CARCINOMA
     Dosage: 25 MG, CYCLIC (TWO WEEKS ON, 1 WEEK OFF)
     Route: 048
     Dates: start: 201310, end: 2017
  3. CABOMETYX [Concomitant]
     Active Substance: CABOZANTINIB S-MALATE
     Dosage: 300/H

REACTIONS (5)
  - Neoplasm progression [Not Recovered/Not Resolved]
  - Influenza [Unknown]
  - Second primary malignancy [Not Recovered/Not Resolved]
  - Oropharyngeal squamous cell carcinoma [Not Recovered/Not Resolved]
  - Polyp [Not Recovered/Not Resolved]

NARRATIVE: CASE EVENT DATE: 2016
